FAERS Safety Report 7151886-1 (Version None)
Quarter: 2010Q4

REPORT INFORMATION
  Report Type: 
  Country: None (occurrence: None)
  Receive Date: 20101210
  Receipt Date: 20101202
  Transmission Date: 20110411
  Serious: Yes (Hospitalization)
  Sender: FDA-Public Use
  Company Number: DE-ABBOTT-10P-062-0631401-00

PATIENT
  Sex: Female

DRUGS (4)
  1. HUMIRA [Suspect]
     Indication: ANKYLOSING SPONDYLITIS
     Dates: start: 20090206
  2. ANALGETICS [Concomitant]
     Indication: PRODUCT USED FOR UNKNOWN INDICATION
  3. CISLOSPORIN [Concomitant]
     Dosage: 100MG DAILY
  4. RANITIDIN RET [Concomitant]
     Dosage: 90MG DAILY DOSE

REACTIONS (2)
  - MUSCULOSKELETAL PAIN [None]
  - NEUROMA [None]
